FAERS Safety Report 14912081 (Version 2)
Quarter: 2018Q2

REPORT INFORMATION
  Report Type: Spontaneous
  Country: US (occurrence: US)
  Receive Date: 20180518
  Receipt Date: 20180530
  Transmission Date: 20180711
  Serious: No
  Sender: FDA-Public Use
  Company Number: US-PFIZER INC-2018201058

PATIENT
  Age: 63 Year
  Sex: Female

DRUGS (2)
  1. THYROXINE [Suspect]
     Active Substance: LEVOTHYROXINE
     Dosage: UNK
  2. VISTARIL [Suspect]
     Active Substance: HYDROXYZINE PAMOATE
     Dosage: UNK

REACTIONS (1)
  - Diarrhoea [Unknown]
